FAERS Safety Report 4800590-0 (Version None)
Quarter: 2005Q4

REPORT INFORMATION
  Report Type: 
  Country: None (occurrence: None)
  Receive Date: 20051017
  Receipt Date: 20050908
  Transmission Date: 20060501
  Serious: Yes (Other)
  Sender: FDA-Public Use
  Company Number: IE-SANOFI-SYNTHELABO-A01200506107

PATIENT
  Sex: Female

DRUGS (3)
  1. ELOXATIN [Suspect]
     Route: 041
  2. PHENYTOIN [Interacting]
  3. FLUOROURACIL [Interacting]
     Dosage: UNKNOWN

REACTIONS (4)
  - DRUG INTERACTION [None]
  - DRUG LEVEL INCREASED [None]
  - GAIT DISTURBANCE [None]
  - NEUTROPENIA [None]
